FAERS Safety Report 9449805 (Version 1)
Quarter: 2013Q3

REPORT INFORMATION
  Report Type: Report from Study
  Country: CA (occurrence: CA)
  Receive Date: 20130809
  Receipt Date: 20130809
  Transmission Date: 20140515
  Serious: Yes (Other)
  Sender: FDA-Public Use
  Company Number: CA-JNJFOC-20130801582

PATIENT
  Sex: Female
  Weight: 63 kg

DRUGS (3)
  1. REMICADE [Suspect]
     Indication: CROHN^S DISEASE
     Route: 042
     Dates: start: 20060914
  2. WARFARIN [Concomitant]
     Route: 065
  3. ZOPICLONE [Concomitant]
     Route: 065

REACTIONS (1)
  - Hernia [Unknown]
